FAERS Safety Report 11840905 (Version 1)
Quarter: 2015Q4

REPORT INFORMATION
  Report Type: Report from Study
  Country: US (occurrence: US)
  Receive Date: 20151216
  Receipt Date: 20151216
  Transmission Date: 20160305
  Serious: Yes (Other)
  Sender: FDA-Public Use
  Company Number: US-JAZZ-2015-US-021434

PATIENT
  Sex: Male

DRUGS (1)
  1. FAZACLO [Suspect]
     Active Substance: CLOZAPINE
     Dosage: 200-450 MG, QD
     Route: 048

REACTIONS (2)
  - Anaemia [Unknown]
  - Schizoaffective disorder [Unknown]
